FAERS Safety Report 22330787 (Version 1)
Quarter: 2023Q2

REPORT INFORMATION
  Report Type: Spontaneous
  Country: US (occurrence: None)
  Receive Date: 20230515
  Receipt Date: 20230515
  Transmission Date: 20230722
  Serious: Yes (Hospitalization)
  Sender: FDA-Public Use
  Company Number: None

PATIENT
  Age: 28 Year
  Sex: Female

DRUGS (1)
  1. GAMUNEX-C [Suspect]
     Active Substance: HUMAN IMMUNOGLOBULIN G

REACTIONS (1)
  - Meningitis [None]

NARRATIVE: CASE EVENT DATE: 20230515
